FAERS Safety Report 12183315 (Version 1)
Quarter: 2016Q1

REPORT INFORMATION
  Report Type: Spontaneous
  Country: US (occurrence: None)
  Receive Date: 20160315
  Receipt Date: 20160315
  Transmission Date: 20160526
  Serious: Yes (Disabling)
  Sender: FDA-Public Use
  Company Number: None

PATIENT
  Age: 67 Year
  Sex: Female
  Weight: 40.82 kg

DRUGS (9)
  1. ATORVASTATIN [Concomitant]
     Active Substance: ATORVASTATIN
  2. CLONAZEPAM. [Concomitant]
     Active Substance: CLONAZEPAM
  3. ADAMTAMINE [Concomitant]
  4. BIOTIN [Concomitant]
     Active Substance: BIOTIN
  5. BUPROPRION [Concomitant]
     Active Substance: BUPROPION
  6. LATUDA [Suspect]
     Active Substance: LURASIDONE HYDROCHLORIDE
     Indication: BIPOLAR DISORDER
     Route: 048
  7. CITALAPRAM [Concomitant]
  8. QUILL OIL [Concomitant]
  9. ZETIA [Concomitant]
     Active Substance: EZETIMIBE

REACTIONS (2)
  - Therapy cessation [None]
  - Tardive dyskinesia [None]
